FAERS Safety Report 9843247 (Version 1)
Quarter: 2014Q1

REPORT INFORMATION
  Report Type: Spontaneous
  Country: RU (occurrence: RU)
  Receive Date: 20140124
  Receipt Date: 20140124
  Transmission Date: 20141002
  Serious: Yes (Hospitalization)
  Sender: FDA-Public Use
  Company Number: PHHY2014RU006408

PATIENT
  Age: 8 Year
  Sex: Male

DRUGS (2)
  1. MONTELAIR HEXAL [Suspect]
     Indication: ASTHMA
     Route: 048
     Dates: start: 20131127, end: 20131127
  2. FLIXOTIDE [Concomitant]

REACTIONS (5)
  - Hypotonia [Unknown]
  - Asthma [Unknown]
  - Asthenia [Unknown]
  - Dizziness [Unknown]
  - Nausea [Unknown]
